FAERS Safety Report 19360255 (Version 1)
Quarter: 2021Q2

REPORT INFORMATION
  Report Type: Report from Study
  Country: KR (occurrence: KR)
  Receive Date: 20210601
  Receipt Date: 20210601
  Transmission Date: 20210717
  Serious: Yes (Other)
  Sender: FDA-Public Use
  Company Number: KR-AMGEN INC.-KORCT2021081756

PATIENT
  Age: 60 Year
  Sex: Female

DRUGS (9)
  1. FILGRASTIM [Suspect]
     Active Substance: FILGRASTIM
     Indication: PRODUCT USED FOR UNKNOWN INDICATION
     Dosage: UNK
     Route: 065
     Dates: start: 20161226, end: 20161228
  2. DARBEPOETIN ALFA [Concomitant]
     Active Substance: DARBEPOETIN ALFA
     Indication: PRODUCT USED FOR UNKNOWN INDICATION
     Dosage: UNK
     Route: 065
     Dates: start: 20161219, end: 20161219
  3. PREGABALIN. [Concomitant]
     Active Substance: PREGABALIN
     Indication: PRODUCT USED FOR UNKNOWN INDICATION
     Dosage: 150 MILLIGRAM
     Route: 065
     Dates: start: 20161219
  4. SILYMARIN [SILYBUM MARIANUM] [Concomitant]
     Active Substance: DIETARY SUPPLEMENT\HERBALS\MILK THISTLE
     Indication: PRODUCT USED FOR UNKNOWN INDICATION
     Dosage: 140 MILLIGRAM
     Route: 065
     Dates: start: 20161219
  5. ERIBULIN [Concomitant]
     Active Substance: ERIBULIN
     Indication: PRODUCT USED FOR UNKNOWN INDICATION
     Dosage: 1.9 MILLIGRAM
     Route: 065
     Dates: start: 20160329, end: 20170628
  6. ERIBULIN [Concomitant]
     Active Substance: ERIBULIN
     Dosage: 2.1 MILLIGRAM
     Route: 065
     Dates: start: 20161219, end: 20170322
  7. CALCIUM DOBESILATE [Concomitant]
     Active Substance: CALCIUM DOBESILATE
     Indication: PRODUCT USED FOR UNKNOWN INDICATION
     Dosage: 250 MILLIGRAM
     Route: 065
     Dates: start: 20161219, end: 20170223
  8. URSODEOXYCHOLIC ACID [Concomitant]
     Active Substance: URSODIOL
     Indication: PRODUCT USED FOR UNKNOWN INDICATION
     Dosage: 100 MILLIGRAM
     Route: 065
     Dates: start: 20161219
  9. FILGRASTIM [Suspect]
     Active Substance: FILGRASTIM
     Dosage: UNK
     Route: 065
     Dates: start: 20170306, end: 20170308

REACTIONS (1)
  - Pancytopenia [Recovering/Resolving]

NARRATIVE: CASE EVENT DATE: 20170329
